FAERS Safety Report 9070222 (Version 2)
Quarter: 2013Q1

REPORT INFORMATION
  Report Type: Spontaneous
  Country: US (occurrence: US)
  Receive Date: 20130215
  Receipt Date: 20130319
  Transmission Date: 20140127
  Serious: No
  Sender: FDA-Public Use
  Company Number: US-ASTRAZENECA-2013SE08838

PATIENT
  Age: 59 Year
  Sex: Female
  Weight: 92.5 kg

DRUGS (12)
  1. NEXIUM [Suspect]
     Indication: GASTROOESOPHAGEAL REFLUX DISEASE
     Route: 048
     Dates: start: 201208, end: 201210
  2. NEXIUM [Suspect]
     Indication: GASTROOESOPHAGEAL REFLUX DISEASE
     Route: 048
     Dates: start: 20121203, end: 20130204
  3. OMEPRAZOLE [Suspect]
     Route: 048
     Dates: start: 20130206
  4. IBUPROFEN [Suspect]
     Indication: ARTHRALGIA
     Route: 065
  5. METHYLTES/EE TABS [Concomitant]
     Indication: HORMONE THERAPY
  6. CALCIUM [Concomitant]
  7. BENADRYL [Concomitant]
     Indication: SLEEP DISORDER
  8. FAMOTINE [Concomitant]
     Indication: HYPERCHLORHYDRIA
  9. VIT D [Concomitant]
  10. POTASSIUM [Concomitant]
  11. CORTISONE INJECTION [Concomitant]
  12. PREVACID [Concomitant]

REACTIONS (3)
  - Stress [Unknown]
  - Abdominal pain upper [Recovered/Resolved]
  - Drug dose omission [Unknown]
